FAERS Safety Report 8903723 (Version 1)
Quarter: 2012Q4

REPORT INFORMATION
  Report Type: 
  Country: US (occurrence: US)
  Receive Date: 20121113
  Receipt Date: 20121113
  Transmission Date: 20130627
  Serious: No
  Sender: FDA-Public Use
  Company Number: US-AMGEN-USASP2012009928

PATIENT
  Age: 53 Year
  Sex: Female

DRUGS (2)
  1. ENBREL [Suspect]
     Indication: RHEUMATOID ARTHRITIS
     Dosage: 50 mg, qwk
     Dates: start: 20111101
  2. METHOTREXATE [Concomitant]
     Dosage: 6 mg, UNK weekly
     Dates: start: 20110901

REACTIONS (7)
  - Tooth extraction [Recovered/Resolved]
  - Cough [Recovered/Resolved]
  - Bronchitis [Recovered/Resolved]
  - Tooth infection [Recovered/Resolved]
  - Sinusitis [Recovered/Resolved]
  - Laryngitis [Recovered/Resolved]
  - Cellulitis [Not Recovered/Not Resolved]
